FAERS Safety Report 18749176 (Version 3)
Quarter: 2021Q2

REPORT INFORMATION
  Report Type: Report from Study
  Country: ES (occurrence: ES)
  Receive Date: 20210116
  Receipt Date: 20210401
  Transmission Date: 20210717
  Serious: Yes (Life-Threatening, Hospitalization, Other)
  Sender: FDA-Public Use
  Company Number: ES-BRISTOL-MYERS SQUIBB COMPANY-BMS-2020-097702

PATIENT
  Age: 59 Year
  Sex: Male
  Weight: 66 kg

DRUGS (18)
  1. NIVOLUMAB [Suspect]
     Active Substance: NIVOLUMAB
     Dosage: 480 MILLIGRAM
     Route: 065
     Dates: start: 20201105, end: 20201105
  2. METAMIZOLE [Concomitant]
     Active Substance: METAMIZOLE
     Indication: PRODUCT USED FOR UNKNOWN INDICATION
     Dosage: 575 MILLIGRAM
     Route: 048
     Dates: start: 20191120
  3. ENOXAPARIN [Concomitant]
     Active Substance: ENOXAPARIN
     Indication: PRODUCT USED FOR UNKNOWN INDICATION
     Dosage: 4000 UNIT NOS
     Route: 058
     Dates: start: 20201116, end: 20201218
  4. MIRABEGRON [Concomitant]
     Active Substance: MIRABEGRON
     Indication: PRODUCT USED FOR UNKNOWN INDICATION
     Dosage: 50 MILLIGRAM
     Route: 048
     Dates: start: 20190924
  5. FLUTICASONE. [Concomitant]
     Active Substance: FLUTICASONE
     Indication: COUGH
     Dosage: 27.5 MICROGRAM
     Route: 045
     Dates: start: 20200929
  6. BLINDED LINRODOSTAT MESYLATE [Suspect]
     Active Substance: LINRODOSTAT MESYLATE
     Indication: BLADDER CANCER
     Dosage: 1 TAB
     Route: 065
     Dates: start: 20191202
  7. NIVOLUMAB [Suspect]
     Active Substance: NIVOLUMAB
     Indication: BLADDER CANCER
     Dosage: 360 MILLIGRAM
     Route: 065
     Dates: start: 20191202, end: 20201008
  8. NALOXONE [Concomitant]
     Active Substance: NALOXONE
     Indication: GROIN PAIN
     Dosage: 10 MILLIGRAM
     Route: 047
     Dates: start: 20191226
  9. PLACEBO [Suspect]
     Active Substance: UNSPECIFIED INGREDIENT
     Indication: BLADDER CANCER
     Dosage: 1 TAB
     Route: 065
     Dates: start: 20191202
  10. GEMCITABINE HYDROCHLORIDE. [Suspect]
     Active Substance: GEMCITABINE HYDROCHLORIDE
     Indication: BLADDER CANCER
     Dosage: 1700 MILLIGRAM
     Route: 065
     Dates: start: 20191202
  11. DEXKETOPROFEN [Concomitant]
     Active Substance: DEXKETOPROFEN
     Indication: GROIN PAIN
     Dosage: 25 MILLIGRAM
     Route: 048
     Dates: start: 20191214
  12. DEFLAZACORT [Concomitant]
     Active Substance: DEFLAZACORT
     Indication: COUGH
     Dosage: 60 MILLIGRAM
     Route: 048
     Dates: start: 20201111, end: 20201113
  13. OXYCODONE [Concomitant]
     Active Substance: OXYCODONE
     Indication: GROIN PAIN
     Dosage: 20 MILLIGRAM
     Route: 048
     Dates: start: 20191226
  14. MACROGOL [Concomitant]
     Active Substance: POLYETHYLENE GLYCOLS
     Indication: CONSTIPATION
     Dosage: 13 GRAM
     Route: 048
     Dates: start: 20200102
  15. MEPIFILINE [Concomitant]
     Indication: COUGH
     Dosage: 1 DOSAGE FORM
     Route: 048
     Dates: start: 20200929
  16. CISPLATIN. [Suspect]
     Active Substance: CISPLATIN
     Indication: BLADDER CANCER
     Dosage: 120 MILLIGRAM
     Route: 065
     Dates: start: 20191202
  17. FERRUM [Concomitant]
     Active Substance: FERROUS FUMARATE
     Indication: ANAEMIA
     Dosage: 80 MILLIGRAM
     Route: 048
     Dates: start: 20200116
  18. DEFLAZACORT [Concomitant]
     Active Substance: DEFLAZACORT
     Dosage: 15 MILLIGRAM
     Route: 048
     Dates: start: 20201114, end: 20201116

REACTIONS (1)
  - Pneumonitis [Not Recovered/Not Resolved]

NARRATIVE: CASE EVENT DATE: 20201116
